FAERS Safety Report 5841678-5 (Version None)
Quarter: 2008Q3

REPORT INFORMATION
  Report Type: 
  Country: None (occurrence: None)
  Receive Date: 20080811
  Receipt Date: 20080811
  Transmission Date: 20090109
  Serious: Yes (Other)
  Sender: FDA-Public Use
  Company Number: None

PATIENT
  Sex: Female
  Weight: 70.7611 kg

DRUGS (2)
  1. GADOLINIUM   BAYER [Suspect]
     Indication: HEADACHE
     Dosage: (DURATION: ONE TIME ONLY)
     Dates: start: 20080708
  2. GADOLINIUM   BAYER [Suspect]
     Indication: NUCLEAR MAGNETIC RESONANCE IMAGING BRAIN
     Dosage: (DURATION: ONE TIME ONLY)
     Dates: start: 20080708

REACTIONS (9)
  - BACK PAIN [None]
  - C-REACTIVE PROTEIN INCREASED [None]
  - CEREBROVASCULAR ACCIDENT [None]
  - CONDITION AGGRAVATED [None]
  - FLANK PAIN [None]
  - HEADACHE [None]
  - LABORATORY TEST ABNORMAL [None]
  - PELVIC PAIN [None]
  - POST PROCEDURAL COMPLICATION [None]
